FAERS Safety Report 9888306 (Version 10)
Quarter: 2014Q4

REPORT INFORMATION
  Report Type: Spontaneous
  Country: US (occurrence: US)
  Receive Date: 20140211
  Receipt Date: 20141114
  Transmission Date: 20150529
  Serious: No
  Sender: FDA-Public Use
  Company Number: US-PFIZER INC-2014036817

PATIENT
  Age: 58 Year
  Sex: Male
  Weight: 97.51 kg

DRUGS (10)
  1. SUTENT [Suspect]
     Active Substance: SUNITINIB MALATE
     Dosage: 25 MG, EVERY OTHER DAY
     Dates: start: 20141017, end: 20141023
  2. SUTENT [Suspect]
     Active Substance: SUNITINIB MALATE
     Indication: METASTATIC RENAL CELL CARCINOMA
     Dosage: 50 MG, CYCLIC DAILY 4 WEEKS ON AND 2 WEEKS OFF
     Dates: start: 20140120, end: 20140708
  3. SUTENT [Suspect]
     Active Substance: SUNITINIB MALATE
     Dosage: 25 MG, CYCLIC
     Dates: start: 20140913
  4. SUTENT [Suspect]
     Active Substance: SUNITINIB MALATE
     Dosage: 25 MG, DAILY 2 WEEKS ON 1 WEEK OFF
  5. COMPAZINE [Concomitant]
     Active Substance: PROCHLORPERAZINE MALEATE
     Dosage: UNK
     Dates: end: 201408
  6. PROTONIX [Concomitant]
     Active Substance: PANTOPRAZOLE SODIUM
     Indication: GASTROOESOPHAGEAL REFLUX DISEASE
  7. CARDIZEM ER [Concomitant]
     Indication: HEART RATE INCREASED
     Dosage: UNK
     Dates: end: 201408
  8. PROTONIX [Concomitant]
     Active Substance: PANTOPRAZOLE SODIUM
     Indication: DYSPEPSIA
     Dosage: UNK
     Dates: end: 201408
  9. ZOFRAN [Concomitant]
     Active Substance: ONDANSETRON HYDROCHLORIDE
     Dosage: UNK
     Dates: end: 201408
  10. ALLOPURINOL. [Concomitant]
     Active Substance: ALLOPURINOL
     Dosage: UNK
     Dates: end: 201408

REACTIONS (27)
  - Oral discomfort [Unknown]
  - Hyperaesthesia [Recovering/Resolving]
  - Pain [Not Recovered/Not Resolved]
  - Paranasal sinus hypersecretion [Not Recovered/Not Resolved]
  - Myalgia [Unknown]
  - Jaundice [Unknown]
  - Gout [Unknown]
  - Dizziness [Unknown]
  - Headache [Unknown]
  - Nausea [Not Recovered/Not Resolved]
  - Skin lesion [Unknown]
  - Vision blurred [Unknown]
  - Hypotension [Unknown]
  - Food intolerance [Unknown]
  - Gingival bleeding [Unknown]
  - Constipation [Not Recovered/Not Resolved]
  - Yellow skin [Unknown]
  - Skin irritation [Unknown]
  - Pruritus generalised [Unknown]
  - Liver function test abnormal [Unknown]
  - Fatigue [Unknown]
  - Stomatitis [Recovering/Resolving]
  - Blood bilirubin increased [Unknown]
  - Glossodynia [Unknown]
  - Eye colour change [Unknown]
  - Acne [Unknown]
  - Abdominal pain [Unknown]
